FAERS Safety Report 13994196 (Version 1)
Quarter: 2017Q3

REPORT INFORMATION
  Report Type: Spontaneous
  Country: US (occurrence: US)
  Receive Date: 20170920
  Receipt Date: 20170920
  Transmission Date: 20171128
  Serious: Yes (Disabling, Other)
  Sender: FDA-Public Use
  Company Number: None

PATIENT
  Age: 53 Year
  Sex: Female
  Weight: 59.85 kg

DRUGS (10)
  1. EVOO VINEGAR WITH MOTHER VEIL [Concomitant]
  2. CYMBALTA [Concomitant]
     Active Substance: DULOXETINE HYDROCHLORIDE
  3. MULTI-VITAMIN [Concomitant]
     Active Substance: .ALPHA.-TOCOPHEROL ACETATE, DL-\ASCORBIC ACID\CYANOCOBALAMIN\FLUORIDE ION\FOLIC ACID\NIACIN\PYRIDOXINE\RIBOFLAVIN\THIAMINE\VITAMIN A\VITAMIN D
  4. VITAMIN D [Concomitant]
     Active Substance: CHOLECALCIFEROL
  5. WALKER CANE [Concomitant]
  6. INJECTABLE VITAMIN B12 [Concomitant]
  7. LEMMON LAVENDER OIL [Concomitant]
  8. EPSOM SALT FOOT BATH [Concomitant]
  9. ULORIC [Suspect]
     Active Substance: FEBUXOSTAT
     Indication: GOUT
     Dosage: ?          QUANTITY:1 TABLET(S);?
     Route: 048
  10. ILEOSTOMY PRODUCTS [Concomitant]

REACTIONS (7)
  - Gait disturbance [None]
  - Gait inability [None]
  - Vision blurred [None]
  - Pruritus [None]
  - Vertigo [None]
  - Rash [None]
  - Balance disorder [None]

NARRATIVE: CASE EVENT DATE: 20170915
